FAERS Safety Report 4440848-0 (Version None)
Quarter: 2004Q3

REPORT INFORMATION
  Report Type: 
  Country: None (occurrence: None)
  Receive Date: 20040903
  Receipt Date: 20040824
  Transmission Date: 20050211
  Serious: Yes (Hospitalization)
  Sender: FDA-Public Use
  Company Number: AU-GLAXOSMITHKLINE-B0344204A

PATIENT
  Sex: Male

DRUGS (5)
  1. ZYBAN [Suspect]
     Dosage: 1TAB UNKNOWN
     Route: 048
     Dates: start: 20040803
  2. VALIUM [Suspect]
  3. WARFARIN SODIUM [Suspect]
  4. TRITACE [Suspect]
  5. ACETAMINOPHEN W/ CODEINE [Suspect]

REACTIONS (6)
  - ADVERSE EVENT [None]
  - AGGRESSION [None]
  - AMNESIA [None]
  - MENTAL DISORDER [None]
  - OVERDOSE [None]
  - SUICIDE ATTEMPT [None]
